FAERS Safety Report 23615843 (Version 1)
Quarter: 2024Q1

REPORT INFORMATION
  Report Type: Spontaneous
  Country: US (occurrence: US)
  Receive Date: 20240311
  Receipt Date: 20240311
  Transmission Date: 20240410
  Serious: No
  Sender: FDA-Public Use
  Company Number: US-Y-MABS THERAPEUTICS, INC.-SPO2024-US-001476

PATIENT

DRUGS (4)
  1. DANYELZA [Suspect]
     Active Substance: NAXITAMAB-GQGK
     Indication: Neuroblastoma recurrent
     Dosage: CYCLE 1, DOSE 1
     Route: 042
     Dates: start: 20240122, end: 20240122
  2. DANYELZA [Suspect]
     Active Substance: NAXITAMAB-GQGK
     Dosage: CYCLE 1, DOSE 2
     Route: 042
     Dates: start: 20240124, end: 20240124
  3. DANYELZA [Suspect]
     Active Substance: NAXITAMAB-GQGK
     Dosage: CYCLE 1, DOSE 3
     Route: 042
     Dates: start: 20240126, end: 20240126
  4. PROPOFOL [Concomitant]
     Active Substance: PROPOFOL
     Indication: Premedication

REACTIONS (4)
  - Hypotension [Recovered/Resolved]
  - Arthralgia [Recovered/Resolved]
  - Pyrexia [Recovered/Resolved]
  - Serum sickness-like reaction [Recovered/Resolved]

NARRATIVE: CASE EVENT DATE: 20240101
